FAERS Safety Report 19999139 (Version 1)
Quarter: 2021Q4

REPORT INFORMATION
  Report Type: Spontaneous
  Country: US (occurrence: US)
  Receive Date: 20211027
  Receipt Date: 20211027
  Transmission Date: 20220303
  Serious: Yes (Life-Threatening, Other)
  Sender: FDA-Public Use
  Company Number: US-HEALTHCARE PHARMACEUTICALS LTD.-2121040

PATIENT
  Age: 61 Year
  Sex: Male

DRUGS (1)
  1. ATENOLOL [Suspect]
     Active Substance: ATENOLOL
     Indication: Product used for unknown indication
     Route: 065

REACTIONS (4)
  - Road traffic accident [Recovered/Resolved with Sequelae]
  - Rib fracture [Unknown]
  - Cardiac arrest [Unknown]
  - Atrial fibrillation [Unknown]
